FAERS Safety Report 20861629 (Version 2)
Quarter: 2023Q1

REPORT INFORMATION
  Report Type: Spontaneous
  Country: CH (occurrence: CH)
  Receive Date: 20220523
  Receipt Date: 20230121
  Transmission Date: 20230418
  Serious: Yes (Other)
  Sender: FDA-Public Use
  Company Number: None

PATIENT
  Age: 70 Year
  Sex: Female

DRUGS (2)
  1. NPLATE [Suspect]
     Active Substance: ROMIPLOSTIM
     Indication: Thrombocytopenia
     Dosage: 500 MICROGRAM
     Route: 065
  2. NPLATE [Suspect]
     Active Substance: ROMIPLOSTIM
     Dosage: 500 MICROGRAM
     Route: 065

REACTIONS (2)
  - Therapeutic product ineffective [Recovering/Resolving]
  - Product quality issue [Unknown]

NARRATIVE: CASE EVENT DATE: 20220301
